FAERS Safety Report 10332871 (Version 3)
Quarter: 2014Q3

REPORT INFORMATION
  Report Type: Spontaneous
  Country: FR (occurrence: FR)
  Receive Date: 20140722
  Receipt Date: 20140918
  Transmission Date: 20150326
  Serious: Yes (Hospitalization)
  Sender: FDA-Public Use
  Company Number: PHHY2014FR053401

PATIENT
  Age: 49 Year
  Sex: Female

DRUGS (1)
  1. GILENYA [Suspect]
     Active Substance: FINGOLIMOD HYDROCHLORIDE
     Route: 048
     Dates: start: 20140115

REACTIONS (3)
  - C-reactive protein increased [Recovered/Resolved]
  - Gamma-glutamyltransferase increased [Unknown]
  - Uterine cyst [Unknown]

NARRATIVE: CASE EVENT DATE: 201404
